FAERS Safety Report 9221497 (Version 1)
Quarter: 2013Q2

REPORT INFORMATION
  Report Type: Spontaneous
  Country: US (occurrence: None)
  Receive Date: 20130408
  Receipt Date: 20130408
  Transmission Date: 20140414
  Serious: Yes (Life-Threatening)
  Sender: FDA-Public Use
  Company Number: None

PATIENT
  Age: 60 Year
  Sex: Female

DRUGS (1)
  1. PACLITAXEL [Suspect]

REACTIONS (7)
  - Chest discomfort [None]
  - Dyspnoea [None]
  - Throat irritation [None]
  - Cough [None]
  - Respiration abnormal [None]
  - Oxygen saturation decreased [None]
  - Infusion related reaction [None]
